FAERS Safety Report 4966253-6 (Version None)
Quarter: 2006Q2

REPORT INFORMATION
  Report Type: 
  Country: None (occurrence: None)
  Receive Date: 20060407
  Receipt Date: 20051123
  Transmission Date: 20061013
  Serious: Yes (Hospitalization)
  Sender: FDA-Public Use
  Company Number: US-MERCK-0511USA04082

PATIENT
  Age: 70 Year
  Sex: Female
  Weight: 85 kg

DRUGS (10)
  1. VIOXX [Suspect]
     Indication: ARTHRALGIA
     Route: 048
     Dates: start: 20021028, end: 20031101
  2. VIOXX [Suspect]
     Indication: ARTHRITIS
     Route: 048
     Dates: start: 20021028, end: 20031101
  3. ASPIRIN [Concomitant]
     Route: 065
  4. AZMACORT [Concomitant]
     Route: 065
  5. PLAVIX [Concomitant]
     Route: 065
  6. PREMARIN [Concomitant]
     Route: 065
  7. PROPRANOLOL HYDROCHLORIDE [Concomitant]
     Route: 065
  8. ALEXAN (SPIRONOLACTONE) [Concomitant]
     Route: 065
  9. ZITHROMAX [Concomitant]
     Route: 065
  10. LIPIVAS (LOVASTATIN) [Concomitant]
     Route: 065

REACTIONS (4)
  - CEREBRAL THROMBOSIS [None]
  - CEREBROVASCULAR ACCIDENT [None]
  - LIMB INJURY [None]
  - PAIN [None]
